FAERS Safety Report 13667447 (Version 3)
Quarter: 2018Q3

REPORT INFORMATION
  Report Type: Report from Study
  Country: None (occurrence: US)
  Receive Date: 20170620
  Receipt Date: 20180731
  Transmission Date: 20181010
  Serious: Yes (Other)
  Sender: FDA-Public Use
  Company Number: US-ABBVIE-17K-163-2010804-00

PATIENT
  Sex: Female

DRUGS (3)
  1. HUMIRA [Suspect]
     Active Substance: ADALIMUMAB
     Indication: RHEUMATOID ARTHRITIS
     Route: 058
  2. COUMADIN [Concomitant]
     Active Substance: WARFARIN SODIUM
     Indication: PRODUCT USED FOR UNKNOWN INDICATION
  3. HUMIRA [Suspect]
     Active Substance: ADALIMUMAB
     Route: 058
     Dates: start: 201710

REACTIONS (11)
  - Cerebrovascular accident [Unknown]
  - Concussion [Unknown]
  - Injection site pain [Not Recovered/Not Resolved]
  - Knee arthroplasty [Unknown]
  - Migraine [Unknown]
  - Osteoporosis [Unknown]
  - Fibromyalgia [Not Recovered/Not Resolved]
  - Dysgraphia [Not Recovered/Not Resolved]
  - Weight decreased [Unknown]
  - Fall [Unknown]
  - Rheumatoid arthritis [Not Recovered/Not Resolved]

NARRATIVE: CASE EVENT DATE: 2016
